FAERS Safety Report 7005594-8 (Version None)
Quarter: 2010Q3

REPORT INFORMATION
  Report Type: 
  Country: None (occurrence: None)
  Receive Date: 20100921
  Receipt Date: 20100915
  Transmission Date: 20110219
  Serious: Yes (Other)
  Sender: FDA-Public Use
  Company Number: A0881291A

PATIENT
  Age: 70 Year
  Sex: Female

DRUGS (6)
  1. TYKERB [Suspect]
     Dosage: 1250MG PER DAY
     Route: 048
     Dates: start: 20090201
  2. HERCEPTIN [Suspect]
     Route: 065
  3. VERAPAMIL [Concomitant]
  4. SINGULAIR [Concomitant]
  5. SPIRIVA [Concomitant]
  6. ZOMETA [Concomitant]

REACTIONS (5)
  - CONSTIPATION [None]
  - DIARRHOEA [None]
  - NEUROPATHY PERIPHERAL [None]
  - ONYCHALGIA [None]
  - ONYCHOMADESIS [None]
